FAERS Safety Report 4637947-7 (Version None)
Quarter: 2005Q2

REPORT INFORMATION
  Report Type: 
  Country: None (occurrence: None)
  Receive Date: 20050418
  Receipt Date: 20050408
  Transmission Date: 20051028
  Serious: Yes (Life-Threatening, Hospitalization)
  Sender: FDA-Public Use
  Company Number: MU-ROCHE-401347

PATIENT
  Age: 20 Year
  Sex: Female
  Weight: 50 kg

DRUGS (1)
  1. ROACCUTANE [Suspect]
     Indication: ACNE
     Route: 048
     Dates: start: 20041115, end: 20050115

REACTIONS (4)
  - DEEP VEIN THROMBOSIS [None]
  - DIPLOPIA [None]
  - HEADACHE [None]
  - INTRACRANIAL PRESSURE INCREASED [None]
